FAERS Safety Report 8767948 (Version 1)
Quarter: 2012Q4

REPORT INFORMATION
  Report Type: 
  Country: SE (occurrence: SE)
  Receive Date: 20120905
  Receipt Date: 20120905
  Transmission Date: 20130627
  Serious: Yes (Other)
  Sender: FDA-Public Use
  Company Number: PHHY2012SE076488

PATIENT
  Age: 75 Year
  Sex: Male

DRUGS (1)
  1. SIMVASTATIN SANDOZ [Suspect]
     Indication: HYPERLIPIDAEMIA
     Dosage: UNK
     Route: 048
     Dates: end: 20110928

REACTIONS (2)
  - Throat tightness [Unknown]
  - Dysphagia [Unknown]
